FAERS Safety Report 12572222 (Version 2)
Quarter: 2017Q1

REPORT INFORMATION
  Report Type: Report from Study
  Country: None (occurrence: BR)
  Receive Date: 20160719
  Receipt Date: 20170217
  Transmission Date: 20170428
  Serious: No
  Sender: FDA-Public Use
  Company Number: BR-ABBVIE-16P-020-1679807-00

PATIENT
  Sex: Female
  Weight: 88 kg

DRUGS (1)
  1. SYNTHROID [Suspect]
     Active Substance: LEVOTHYROXINE SODIUM
     Indication: PRODUCT USED FOR UNKNOWN INDICATION
     Route: 048
     Dates: start: 201605

REACTIONS (2)
  - Thyroid disorder [Not Recovered/Not Resolved]
  - Inappropriate schedule of drug administration [Unknown]
